FAERS Safety Report 8393411-3 (Version None)
Quarter: 2012Q2

REPORT INFORMATION
  Report Type: 
  Country: None (occurrence: None)
  Receive Date: 20120529
  Receipt Date: 20120524
  Transmission Date: 20120825
  Serious: No
  Sender: FDA-Public Use
  Company Number: US-PFIZER INC-2012126317

PATIENT
  Sex: Female
  Weight: 91 kg

DRUGS (4)
  1. GABAPENTIN [Suspect]
     Dosage: 600 MG, 2X/DAY
     Route: 048
     Dates: start: 20120315
  2. COREG [Concomitant]
     Indication: HYPERTENSION
     Dosage: UNK
  3. GABAPENTIN [Suspect]
     Indication: DIABETIC NEUROPATHY
     Dosage: 600 MG, 2X/DAY
     Route: 048
     Dates: start: 20040101, end: 20111201
  4. GLIPIZIDE [Concomitant]
     Indication: DIABETES MELLITUS
     Dosage: UNK

REACTIONS (7)
  - MEMORY IMPAIRMENT [None]
  - DYSPHEMIA [None]
  - PAIN IN EXTREMITY [None]
  - GAIT DISTURBANCE [None]
  - SPEECH DISORDER [None]
  - DIZZINESS [None]
  - FEELING ABNORMAL [None]
